FAERS Safety Report 12088290 (Version 3)
Quarter: 2016Q2

REPORT INFORMATION
  Report Type: Report from Study
  Country: US (occurrence: US)
  Receive Date: 20160218
  Receipt Date: 20160601
  Transmission Date: 20160815
  Serious: Yes (Other)
  Sender: FDA-Public Use
  Company Number: US-AMGEN-USASL2016017703

PATIENT
  Age: 81 Year
  Sex: Female

DRUGS (2)
  1. REPATHA [Suspect]
     Active Substance: EVOLOCUMAB
     Dosage: 140 MG, Q2WK
     Route: 065
  2. REPATHA [Suspect]
     Active Substance: EVOLOCUMAB
     Indication: HYPERCHOLESTEROLAEMIA
     Dosage: 140 MG, Q2WK
     Route: 065
     Dates: start: 20150908, end: 20160128

REACTIONS (16)
  - Arthralgia [Recovering/Resolving]
  - Abasia [Recovering/Resolving]
  - Condition aggravated [Recovering/Resolving]
  - Lip swelling [Recovering/Resolving]
  - Arthropathy [Recovering/Resolving]
  - Mobility decreased [Recovering/Resolving]
  - Swollen tongue [Recovering/Resolving]
  - Activities of daily living impaired [Recovering/Resolving]
  - Blister [Unknown]
  - Pharyngeal oedema [Recovering/Resolving]
  - Erythema [Recovering/Resolving]
  - Rash macular [Recovering/Resolving]
  - Urinary tract infection [Recovering/Resolving]
  - Feeling abnormal [Unknown]
  - Pruritus [Recovering/Resolving]
  - Rash [Unknown]

NARRATIVE: CASE EVENT DATE: 201602
